FAERS Safety Report 23368829 (Version 3)
Quarter: 2024Q1

REPORT INFORMATION
  Report Type: Spontaneous
  Country: US (occurrence: None)
  Receive Date: 20240105
  Receipt Date: 20240125
  Transmission Date: 20240409
  Serious: No
  Sender: FDA-Public Use
  Company Number: 2023A284917

PATIENT
  Age: 28714 Day
  Sex: Female

DRUGS (2)
  1. BYDUREON BCISE [Suspect]
     Active Substance: EXENATIDE
  2. BYDUREON [Concomitant]
     Active Substance: EXENATIDE
     Dosage: UNKNOWN

REACTIONS (7)
  - Overdose [Unknown]
  - Memory impairment [Unknown]
  - Device leakage [Unknown]
  - Wrong technique in device usage process [Unknown]
  - Incorrect dose administered by device [Unknown]
  - Device use issue [Unknown]
  - Device delivery system issue [Unknown]

NARRATIVE: CASE EVENT DATE: 20231210
